FAERS Safety Report 9524215 (Version 1)
Quarter: 2013Q3

REPORT INFORMATION
  Report Type: Spontaneous
  Country: IT (occurrence: IT)
  Receive Date: 20130916
  Receipt Date: 20130916
  Transmission Date: 20140515
  Serious: Yes (Other)
  Sender: FDA-Public Use
  Company Number: IT-ACCORD-019312

PATIENT
  Age: 87 Year
  Sex: Male

DRUGS (9)
  1. CORTONE ACETATO [Concomitant]
     Dosage: 25MG TABLETS, 20 TABLETS
  2. CLEXAN [Concomitant]
     Dosage: CLEXAN 4000 IU AXA, 6 SYRINGE
  3. MYLICON [Concomitant]
     Dosage: CHILDREN, ORAL DROPS FOR SOLUTION^ 30ML VIAL
  4. LANSOX [Concomitant]
     Dosage: 30MG HARD CAPSULE, 14 CAPSULE
  5. ALDACTONE [Concomitant]
     Dosage: 25MG HARD CAPSULE, 16 CAPSULE
  6. ZOLPIDEM TARTRATE [Concomitant]
  7. CALCIUM CARBONATE [Concomitant]
  8. MOVICOL [Concomitant]
     Dosage: MOVICOL POWDER PER OS 13.8G
  9. AMLODIPINE [Suspect]
     Indication: HYPERTENSION
     Route: 048
     Dates: start: 20100101, end: 20130615

REACTIONS (3)
  - Hypotension [Recovering/Resolving]
  - Loss of consciousness [Recovering/Resolving]
  - Malaise [Unknown]
